FAERS Safety Report 5205087-4 (Version None)
Quarter: 2007Q1

REPORT INFORMATION
  Report Type: 
  Country: None (occurrence: None)
  Receive Date: 20070110
  Receipt Date: 20061025
  Transmission Date: 20070707
  Serious: Yes (Hospitalization)
  Sender: FDA-Public Use
  Company Number: US-BRISTOL-MYERS SQUIBB COMPANY-13556006

PATIENT
  Age: 13 Year
  Sex: Female
  Weight: 61 kg

DRUGS (4)
  1. ABILIFY [Suspect]
     Indication: BIPOLAR DISORDER
     Dosage: 5MG PER DAY INCREASED TO 10MG PER DAY THEN 5MG BID AT ONSET WEANED OFF AT 15MG BID.
  2. ABILIFY [Suspect]
     Indication: AUTISM
     Dosage: 5MG PER DAY INCREASED TO 10MG PER DAY THEN 5MG BID AT ONSET WEANED OFF AT 15MG BID.
  3. DEPAKOTE [Concomitant]
  4. COGENTIN [Concomitant]

REACTIONS (5)
  - AGGRESSION [None]
  - BRUXISM [None]
  - DRUG EFFECT DECREASED [None]
  - DYSKINESIA [None]
  - INTERMITTENT EXPLOSIVE DISORDER [None]
